FAERS Safety Report 6388497-1 (Version None)
Quarter: 2009Q4

REPORT INFORMATION
  Report Type: 
  Country: None (occurrence: None)
  Receive Date: 20091005
  Receipt Date: 20090930
  Transmission Date: 20100525
  Serious: Yes (Hospitalization)
  Sender: FDA-Public Use
  Company Number: B0583916A

PATIENT
  Sex: Female
  Weight: 32 kg

DRUGS (8)
  1. ZIDOVUDINE [Suspect]
     Indication: HIV INFECTION
     Dosage: 300MG TWICE PER DAY
     Route: 048
     Dates: start: 20081119, end: 20090701
  2. VIDEX [Suspect]
     Indication: HIV INFECTION
     Dosage: 250MG PER DAY
     Route: 048
     Dates: start: 20081119, end: 20090701
  3. KALETRA [Suspect]
     Indication: HIV INFECTION
     Dosage: 500MG TWICE PER DAY
     Route: 048
     Dates: start: 20081119, end: 20090702
  4. VINCRISTINE [Suspect]
     Indication: DRUG USE FOR UNKNOWN INDICATION
     Dates: start: 20090417
  5. BLEOMYCIN SULFATE [Suspect]
     Indication: DRUG USE FOR UNKNOWN INDICATION
     Dates: start: 20090417
  6. COTRIM [Suspect]
     Dates: start: 20070803
  7. ISONIAZID [Concomitant]
  8. ETHAMBUTOL HYDROCHLORIDE [Concomitant]

REACTIONS (12)
  - ABDOMINAL PAIN [None]
  - ANAEMIA [None]
  - ASTHENIA [None]
  - DIARRHOEA [None]
  - NAUSEA [None]
  - NEUTROPENIA [None]
  - ODYNOPHAGIA [None]
  - ORAL CANDIDIASIS [None]
  - PALLOR [None]
  - PALPITATIONS [None]
  - PYREXIA [None]
  - SWOLLEN TONGUE [None]
